FAERS Safety Report 12100111 (Version 5)
Quarter: 2016Q1

REPORT INFORMATION
  Report Type: Spontaneous
  Country: US (occurrence: US)
  Receive Date: 20160222
  Receipt Date: 20160323
  Transmission Date: 20160526
  Serious: Yes (Hospitalization)
  Sender: FDA-Public Use
  Company Number: US-PFIZER INC-2016092332

PATIENT
  Age: 52 Year
  Sex: Female

DRUGS (16)
  1. CLONIDINE HCL [Concomitant]
     Active Substance: CLONIDINE HYDROCHLORIDE
     Dosage: .1 MG, UNK (1TAB IF SBP IS } 150)
  2. METOPROLOL SUCC ER [Concomitant]
     Active Substance: METOPROLOL SUCCINATE
     Indication: PAIN
     Dosage: 25 MG, 1X/DAY (1 TAB AT NIGHT TIME)
  3. ASPIRIN. [Concomitant]
     Active Substance: ASPIRIN
     Dosage: 81 UNK, UNK (1 TAB P.M)
  4. PROMETHAZINE [Concomitant]
     Active Substance: PROMETHAZINE\PROMETHAZINE HYDROCHLORIDE
     Dosage: 25 MG, 1X/DAY (NIGHT TIME)
  5. BUTALB-ACETAMIN [Concomitant]
     Dosage: UNK, 4X/DAY (BUTALBITAL 50 MG, ACETAMINOPHEN 325 MG AND CAFFEINE 40 MG) (1 EVERY 6 HRS)
  6. HYDRALAZINE [Concomitant]
     Active Substance: HYDRALAZINE HYDROCHLORIDE
     Dosage: 50 MG, 4X/DAY
  7. LYRICA [Suspect]
     Active Substance: PREGABALIN
     Indication: SPINAL PAIN
     Dosage: 450 MG, DAILY (300MG IN THE MORNING AND 150MG IN THE EVENING)
  8. DONEPEZIL HCL [Concomitant]
     Active Substance: DONEPEZIL HYDROCHLORIDE
     Dosage: 10 MG, 1X/DAY (AT NIGHT)
  9. CARISOPRODOL. [Concomitant]
     Active Substance: CARISOPRODOL
     Dosage: 350 MG, 4X/DAY
  10. ENALAPRIL-HCTZ [Concomitant]
     Dosage: 1 DF, DAILY (ENALAPRIL 10MG-HYDROCHLOROTHIAZIDE 25 MG)
  11. MELOXICAM. [Concomitant]
     Active Substance: MELOXICAM
     Indication: PAIN
     Dosage: 15 MG, DAILY (1 TAB DAILY)
  12. LYRICA [Suspect]
     Active Substance: PREGABALIN
     Indication: LUMBAR RADICULOPATHY
     Dosage: 200 MG, 2X/DAY
     Route: 048
     Dates: start: 2012
  13. NIFEDIPINE. [Concomitant]
     Active Substance: NIFEDIPINE
     Dosage: 30 MG, 1X/DAY (1 AT NIGHT)
  14. AMITRIPTYLINE HCL [Concomitant]
     Active Substance: AMITRIPTYLINE
     Dosage: 25 MG, 1X/DAY (1 TAB AM)
  15. CLONAZEPAM. [Concomitant]
     Active Substance: CLONAZEPAM
     Indication: ANXIETY
     Dosage: 2 MG, AS NEEDED (TWICE A DAY OR AS NEEDED)
  16. MELOXICAM. [Concomitant]
     Active Substance: MELOXICAM
     Dosage: 7.5 UNK, UNK (NEEDED FOR PAIN AT NIGHT)

REACTIONS (3)
  - Cardiac disorder [Not Recovered/Not Resolved]
  - Intentional product use issue [Unknown]
  - Hypertension [Not Recovered/Not Resolved]

NARRATIVE: CASE EVENT DATE: 201202
